FAERS Safety Report 7619221-X (Version None)
Quarter: 2011Q3

REPORT INFORMATION
  Report Type: 
  Country: None (occurrence: None)
  Receive Date: 20110718
  Receipt Date: 20110707
  Transmission Date: 20111222
  Serious: Yes (Hospitalization, Disabling)
  Sender: FDA-Public Use
  Company Number: US-ASTRAZENECA-2011SE06722

PATIENT
  Age: 72 Year
  Sex: Male
  Weight: 72.1 kg

DRUGS (4)
  1. COMBIVENT [Concomitant]
     Dates: start: 20100701
  2. PREDNISONE [Concomitant]
  3. SYMBICORT [Suspect]
     Dosage: 160/4.5 MCG, 1 PUFF TWO TIMES A DAY
     Route: 055
     Dates: start: 20100701
  4. SOLU-MEDROL [Concomitant]

REACTIONS (1)
  - PNEUMONIA [None]
